FAERS Safety Report 8992062 (Version 1)
Quarter: 2012Q4

REPORT INFORMATION
  Report Type: Report from Study
  Country: FR (occurrence: FR)
  Receive Date: 20121231
  Receipt Date: 20121231
  Transmission Date: 20130627
  Serious: Yes (Disabling)
  Sender: FDA-Public Use
  Company Number: FR-CELGENEUS-056-21880-12122375

PATIENT
  Age: 56 Year
  Sex: Female

DRUGS (6)
  1. REVLIMID [Suspect]
     Indication: MYELOMA
     Dosage: 25 Milligram
     Route: 048
     Dates: start: 20111230, end: 20120227
  2. BORTEZOMIB [Suspect]
     Indication: MYELOMA
     Dosage: 1.75 Milligram
     Route: 050
     Dates: start: 20111230, end: 20120224
  3. DEXAMETHASONE [Suspect]
     Indication: MYELOMA
     Dosage: 1.75 Milligram
     Route: 050
     Dates: start: 20111230, end: 20120225
  4. LEVOTHYROX [Concomitant]
     Indication: HYPOTHYROIDISM
     Route: 048
  5. DIFFU K [Concomitant]
     Indication: HYPOKALEMIA
     Dosage: 3.6 Gram
     Route: 048
  6. LEDERFOLINE [Concomitant]
     Indication: PROPHYLAXIS
     Dosage: 25 Milligram
     Route: 048

REACTIONS (1)
  - Myelofibrosis [Not Recovered/Not Resolved]
